FAERS Safety Report 5220577-6 (Version None)
Quarter: 2007Q1

REPORT INFORMATION
  Report Type: 
  Country: None (occurrence: None)
  Receive Date: 20070125
  Receipt Date: 20070125
  Transmission Date: 20070707
  Serious: Yes (Hospitalization)
  Sender: FDA-Public Use
  Company Number: None

PATIENT
  Sex: Male
  Weight: 58.9676 kg

DRUGS (6)
  1. ALDACTONE [Suspect]
     Indication: HYPERTENSION
     Dosage: 25MG PO QD PRIOR TO ADMISSION
     Route: 048
  2. COREG [Concomitant]
  3. LASIX [Concomitant]
  4. HYDROCODONE BITARTRATE [Concomitant]
  5. COUMADIN [Concomitant]
  6. LISINOPRIL [Concomitant]

REACTIONS (1)
  - BLOOD POTASSIUM INCREASED [None]
